FAERS Safety Report 10569553 (Version 1)
Quarter: 2014Q4

REPORT INFORMATION
  Report Type: Spontaneous
  Country: JP (occurrence: JP)
  Receive Date: 20141106
  Receipt Date: 20141106
  Transmission Date: 20150529
  Serious: Yes (Life-Threatening, Other)
  Sender: FDA-Public Use
  Company Number: JP-ASTRAZENECA-2014SE83822

PATIENT
  Age: 69 Year
  Sex: Female
  Weight: 45 kg

DRUGS (2)
  1. ANTIPYRETIC ANALGESIC [Suspect]
     Active Substance: UNSPECIFIED INGREDIENT
     Dosage: 64 TABLETS ONCE
  2. SEROQUEL [Suspect]
     Active Substance: QUETIAPINE FUMARATE
     Dosage: 6 TABLET ONCE
     Route: 048
     Dates: start: 20141026

REACTIONS (6)
  - Salivary hypersecretion [Unknown]
  - Altered state of consciousness [Unknown]
  - Vomiting [Unknown]
  - Suicide attempt [Unknown]
  - Miosis [Unknown]
  - Intentional overdose [Unknown]

NARRATIVE: CASE EVENT DATE: 20141026
